FAERS Safety Report 7914573-5 (Version None)
Quarter: 2011Q4

REPORT INFORMATION
  Report Type: 
  Country: None (occurrence: None)
  Receive Date: 20111115
  Receipt Date: 20111103
  Transmission Date: 20120403
  Serious: Yes (Other)
  Sender: FDA-Public Use
  Company Number: PHEH2011US008542

PATIENT
  Sex: Female

DRUGS (1)
  1. TEKTURNA HCT [Suspect]
     Dosage: 300 MG ALIS AND 25 MG HYDR, QD
     Route: 048

REACTIONS (8)
  - CARDIAC DISORDER [None]
  - AUTOIMMUNE DISORDER [None]
  - DIABETES MELLITUS [None]
  - HEADACHE [None]
  - OSTEOARTHRITIS [None]
  - THYROID DISORDER [None]
  - OSTEOPOROSIS [None]
  - SLEEP DISORDER [None]
